FAERS Safety Report 8941846 (Version 1)
Quarter: 2012Q4

REPORT INFORMATION
  Report Type: 
  Country: US (occurrence: US)
  Receive Date: 20121203
  Receipt Date: 20121203
  Transmission Date: 20130627
  Serious: Yes (Other)
  Sender: FDA-Public Use
  Company Number: US-BAYER-2012-126087

PATIENT

DRUGS (2)
  1. ALEVE CAPLET/TABLET,MIDOL EXTENDED RELIEF CAPLET [Suspect]
     Indication: PAIN NOS
  2. ANALGESICS [Concomitant]

REACTIONS (7)
  - Presyncope [None]
  - Hypoaesthesia [None]
  - Drug ineffective [None]
  - Paraesthesia [None]
  - Paraesthesia oral [None]
  - Dizziness [None]
  - Pain [None]
